FAERS Safety Report 12411308 (Version 1)
Quarter: 2016Q2

REPORT INFORMATION
  Report Type: Spontaneous
  Country: None (occurrence: None)
  Receive Date: 20160526
  Receipt Date: 20160526
  Transmission Date: 20160815
  Serious: No
  Sender: FDA-Public Use
  Company Number: None

PATIENT
  Age: 26 Year
  Sex: Female
  Weight: 39 kg

DRUGS (1)
  1. POLYMYXIN B. [Suspect]
     Active Substance: POLYMYXIN B

REACTIONS (10)
  - Fall [None]
  - Tachycardia [None]
  - Dizziness [None]
  - Pharyngeal paraesthesia [None]
  - Jaw disorder [None]
  - Muscular weakness [None]
  - Vasodilatation [None]
  - Oropharyngeal discomfort [None]
  - Loss of consciousness [None]
  - Neurotoxicity [None]
